FAERS Safety Report 19359632 (Version 1)
Quarter: 2021Q2

REPORT INFORMATION
  Report Type: Report from Study
  Country: DE (occurrence: DE)
  Receive Date: 20210601
  Receipt Date: 20210601
  Transmission Date: 20210717
  Serious: Yes (Hospitalization)
  Sender: FDA-Public Use
  Company Number: DE-SAMSUNG BIOEPIS-SB-2021-13173

PATIENT
  Age: 62 Year
  Sex: Female

DRUGS (1)
  1. IMRALDI [Suspect]
     Active Substance: ADALIMUMAB
     Indication: PSORIASIS
     Dosage: DISCONTINUED UNTIL 14?OCT?2020
     Route: 058
     Dates: start: 20190516, end: 20200929

REACTIONS (2)
  - COVID-19 pneumonia [Recovered/Resolved with Sequelae]
  - General physical health deterioration [Unknown]

NARRATIVE: CASE EVENT DATE: 20200929
